FAERS Safety Report 9958922 (Version 2)
Quarter: 2014Q1

REPORT INFORMATION
  Report Type: Report from Study
  Country: US (occurrence: US)
  Receive Date: 20140305
  Receipt Date: 20140305
  Transmission Date: 20141002
  Serious: No
  Sender: FDA-Public Use
  Company Number: US-ABBVIE-13P-163-1081147-00

PATIENT
  Age: 83 Year
  Sex: Female

DRUGS (13)
  1. HUMIRA [Suspect]
     Indication: DIVERTICULITIS
     Route: 058
     Dates: start: 20130206, end: 20130301
  2. COZAAR [Concomitant]
     Indication: BLOOD PRESSURE
  3. ATENOLOL [Concomitant]
     Indication: HYPERTENSION
  4. DETROL LA [Concomitant]
     Indication: BLADDER DISORDER
  5. SERTRALINE [Concomitant]
     Indication: DEPRESSION
  6. VOLTAREN [Concomitant]
     Indication: ARTHRALGIA
  7. VOLTAREN [Concomitant]
     Indication: BURSITIS
  8. DYFLOGEST [Concomitant]
     Indication: IRRITABLE BOWEL SYNDROME
  9. FLONASE [Concomitant]
     Indication: SEASONAL ALLERGY
     Dosage: 2 SQUIRTS IN EACH NOSTRIL DAILY
  10. UNKNOWN EYE DROPS [Concomitant]
     Indication: DRY EYE
  11. CLOBESTASOL [Concomitant]
     Indication: PSORIASIS
     Dosage: APPLY TO SCALP DAILY AND 2X/DAY TO HANDS AND FEET
     Route: 061
     Dates: start: 201210
  12. PREDNISONE [Concomitant]
     Indication: PSORIASIS
     Dosage: TAPER
     Route: 048
     Dates: start: 2012
  13. TRIAMCINOLONE ACETATE [Concomitant]
     Indication: PSORIASIS
     Route: 061
     Dates: start: 2012

REACTIONS (6)
  - Weight decreased [Unknown]
  - Diverticulitis [Recovered/Resolved]
  - Vomiting [Unknown]
  - Decreased appetite [Unknown]
  - Immune system disorder [Recovered/Resolved]
  - Psoriasis [Unknown]
